FAERS Safety Report 5518090-1 (Version None)
Quarter: 2007Q4

REPORT INFORMATION
  Report Type: 
  Country: None (occurrence: None)
  Receive Date: 20071115
  Receipt Date: 20071106
  Transmission Date: 20080405
  Serious: Yes (Hospitalization, Other)
  Sender: FDA-Public Use
  Company Number: PHBS2007BR18682

PATIENT
  Age: 76 Year
  Sex: Female
  Weight: 76 kg

DRUGS (1)
  1. LEPONEX [Suspect]
     Indication: ACCIDENTAL EXPOSURE
     Dosage: 200 MG, ONCE/SINGLE
     Route: 048
     Dates: start: 20071028

REACTIONS (5)
  - ACCIDENTAL EXPOSURE [None]
  - COMA [None]
  - CONFUSIONAL STATE [None]
  - GASTRIC LAVAGE [None]
  - SYNCOPE [None]
